FAERS Safety Report 18311913 (Version 1)
Quarter: 2020Q3

REPORT INFORMATION
  Report Type: Spontaneous
  Country: CA (occurrence: CA)
  Receive Date: 20200925
  Receipt Date: 20200925
  Transmission Date: 20201103
  Serious: Yes (Hospitalization, Other)
  Sender: FDA-Public Use
  Company Number: CA-ACCORD-202171

PATIENT
  Age: 63 Year
  Sex: Male

DRUGS (5)
  1. GEMCITABINE/GEMCITABINE HYDROCHLORIDE [Suspect]
     Active Substance: GEMCITABINE\GEMCITABINE HYDROCHLORIDE
     Indication: CHEMOTHERAPY
     Dosage: NOT SPECIFIED,40.0 MILLIGRAM/ MILLILITER
  2. DEXAMETHASONE. [Concomitant]
     Active Substance: DEXAMETHASONE
     Dosage: NOT SPECIFIED
     Route: 065
  3. AKYNZEO [Concomitant]
     Active Substance: NETUPITANT\PALONOSETRON HYDROCHLORIDE
  4. CISPLATIN. [Concomitant]
     Active Substance: CISPLATIN
     Dosage: INJECTION
  5. GABAPENTIN. [Concomitant]
     Active Substance: GABAPENTIN
     Dosage: NOT SPECIFIED

REACTIONS (4)
  - Hepatic artery occlusion [Unknown]
  - Paraesthesia [Unknown]
  - Pain [Unknown]
  - Coronary artery disease [Unknown]
